FAERS Safety Report 17874407 (Version 1)
Quarter: 2020Q2

REPORT INFORMATION
  Report Type: Other
  Country: SE (occurrence: SE)
  Receive Date: 20200609
  Receipt Date: 20200609
  Transmission Date: 20200714
  Serious: Yes (Life-Threatening, Other)
  Sender: FDA-Public Use
  Company Number: SE-DEXPHARM-20200477

PATIENT
  Age: 45 Year
  Sex: Male

DRUGS (2)
  1. MELANOTAN II [Suspect]
     Active Substance: INVESTIGATIONAL PRODUCT
  2. DICLOFENAC [Suspect]
     Active Substance: DICLOFENAC

REACTIONS (1)
  - Renal infarct [Unknown]
